FAERS Safety Report 18279410 (Version 2)
Quarter: 2020Q3

REPORT INFORMATION
  Report Type: Spontaneous
  Country: US (occurrence: US)
  Receive Date: 20200917
  Receipt Date: 20200929
  Transmission Date: 20201103
  Serious: Yes (Hospitalization)
  Sender: FDA-Public Use
  Company Number: US-BAUSCH-BL-2020-026150

PATIENT
  Age: 5 Day
  Sex: Female
  Weight: 7.9 kg

DRUGS (2)
  1. VENLAFAXINE [Suspect]
     Active Substance: VENLAFAXINE HYDROCHLORIDE
     Dosage: MATERNAL DOSE: 150MG DAILY STARTING 2 MONTHS PRIOR TO DELIVERY
     Route: 064
  2. VENLAFAXINE [Suspect]
     Active Substance: VENLAFAXINE HYDROCHLORIDE
     Indication: PRODUCT USED FOR UNKNOWN INDICATION
     Dosage: MATERNAL DOSE: 112.5 MG DAILY
     Route: 064

REACTIONS (3)
  - Maternal exposure during pregnancy [Unknown]
  - Encephalopathy neonatal [Recovered/Resolved]
  - Foetal exposure during pregnancy [Unknown]
